FAERS Safety Report 18559727 (Version 1)
Quarter: 2020Q4

REPORT INFORMATION
  Report Type: Spontaneous
  Country: US (occurrence: US)
  Receive Date: 20201129
  Receipt Date: 20201129
  Transmission Date: 20210114
  Serious: Yes (Hospitalization)
  Sender: FDA-Public Use
  Company Number: None

PATIENT
  Age: 59 Year
  Sex: Female
  Weight: 129.6 kg

DRUGS (7)
  1. PREDNISONE. [Concomitant]
     Active Substance: PREDNISONE
  2. ELIQUIS [Concomitant]
     Active Substance: APIXABAN
  3. RINVOQ [Suspect]
     Active Substance: UPADACITINIB
     Indication: RHEUMATOID ARTHRITIS
     Dosage: ?          QUANTITY:1 TABLET(S);?
     Route: 048
     Dates: start: 20200319, end: 20200928
  4. MAGNESIUM [Concomitant]
     Active Substance: MAGNESIUM
  5. HYDROCODONE [Concomitant]
     Active Substance: HYDROCODONE
  6. METOLPROLOL [Concomitant]
  7. POTASSIUM [Concomitant]
     Active Substance: POTASSIUM

REACTIONS (5)
  - Pulmonary thrombosis [None]
  - Diarrhoea [None]
  - Weight decreased [None]
  - Gastric disorder [None]
  - Vomiting [None]

NARRATIVE: CASE EVENT DATE: 20201002
